FAERS Safety Report 8009162-0 (Version None)
Quarter: 2011Q4

REPORT INFORMATION
  Report Type: 
  Country: None (occurrence: None)
  Receive Date: 20111227
  Receipt Date: 20111219
  Transmission Date: 20120403
  Serious: Yes (Death, Hospitalization)
  Sender: FDA-Public Use
  Company Number: US-CELGENEUS-163-21880-11112981

PATIENT
  Sex: Female

DRUGS (16)
  1. LASIX [Concomitant]
     Dosage: 80 MILLIGRAM
     Route: 065
  2. VALIUM [Concomitant]
     Dosage: .5 TABLET
     Route: 065
  3. IRON [Concomitant]
     Route: 065
  4. ZOFRAN ODT [Concomitant]
     Indication: NAUSEA
     Dosage: 1 TABLET
     Route: 065
  5. COUMADIN [Concomitant]
     Dosage: 1 TABLET
     Route: 065
  6. ZOFRAN ODT [Concomitant]
     Indication: VOMITING
  7. PROMETRIUM [Concomitant]
     Route: 065
  8. OXYCONTIN [Concomitant]
     Dosage: 1 TABLET
     Route: 065
  9. PERCOCET [Concomitant]
     Indication: PAIN
     Dosage: 5/325 MG, 1-2 TABS
     Route: 065
  10. DIPHENHYDRAMINE HCL [Concomitant]
     Dosage: 1 - 2 CAPS
     Route: 065
  11. ATIVAN [Concomitant]
     Dosage: 1 TABLET
     Route: 065
  12. CENESTIN [Concomitant]
     Route: 065
  13. FLUOXETINE [Concomitant]
     Route: 065
  14. REVLIMID [Suspect]
     Indication: MULTIPLE MYELOMA
     Dosage: 25 MILLIGRAM
     Route: 048
     Dates: start: 20100801
  15. DECADRON [Concomitant]
     Dosage: 5 TABLET
     Route: 065
  16. HYDROXYZINE [Concomitant]
     Dosage: 1 TABLET
     Route: 065

REACTIONS (1)
  - MULTIPLE MYELOMA [None]
